FAERS Safety Report 8435896 (Version 15)
Quarter: 2014Q1

REPORT INFORMATION
  Report Type: Spontaneous
  Country: BE (occurrence: BE)
  Receive Date: 20120301
  Receipt Date: 20140226
  Transmission Date: 20141002
  Serious: Yes (Death, Hospitalization, Other)
  Sender: FDA-Public Use
  Company Number: BE-AMGEN-BELSP2012012759

PATIENT
  Age: 68 Year
  Sex: Male

DRUGS (6)
  1. NPLATE [Suspect]
     Indication: IMMUNE THROMBOCYTOPENIC PURPURA
     Dosage: 750 MUG, VIAL SIZE 250 UG, UNK
     Route: 065
     Dates: start: 201104
  2. GLUCOPHAGE [Concomitant]
     Dosage: UNK
  3. CORTISONE [Concomitant]
     Dosage: 16 MG, QD
  4. INSULIN [Concomitant]
     Dosage: UNK
  5. ZANTAC [Concomitant]
  6. ACICLOVIR [Concomitant]

REACTIONS (18)
  - Death [Fatal]
  - Pyrexia [Unknown]
  - Platelet count decreased [Unknown]
  - Immune thrombocytopenic purpura [Unknown]
  - Haemoglobin abnormal [Unknown]
  - Thrombosis [Unknown]
  - Blood insulin abnormal [Unknown]
  - Evans syndrome [Unknown]
  - Embolism [Unknown]
  - Asthenia [Unknown]
  - Back pain [Recovered/Resolved]
  - Muscle spasms [Not Recovered/Not Resolved]
  - Gait disturbance [Recovered/Resolved]
  - Drug dose omission [Unknown]
  - Aphthous stomatitis [Recovered/Resolved]
  - Weight decreased [Unknown]
  - General physical health deterioration [Unknown]
  - Pain in extremity [Recovered/Resolved]
